FAERS Safety Report 13689209 (Version 2)
Quarter: 2017Q3

REPORT INFORMATION
  Report Type: Spontaneous
  Country: JP (occurrence: JP)
  Receive Date: 20170626
  Receipt Date: 20170815
  Transmission Date: 20171127
  Serious: Yes (Other)
  Sender: FDA-Public Use
  Company Number: JP-ALLERGAN-1726318US

PATIENT

DRUGS (1)
  1. RISEDRONATE SODIUM - BP [Suspect]
     Active Substance: RISEDRONATE SODIUM
     Indication: OSTEOPOROSIS
     Dosage: 17.5 MG, Q WEEK
     Route: 048

REACTIONS (1)
  - Metastases to bone [Unknown]
